FAERS Safety Report 23355938 (Version 1)
Quarter: 2024Q1

REPORT INFORMATION
  Report Type: Spontaneous
  Country: BE (occurrence: BE)
  Receive Date: 20240102
  Receipt Date: 20240102
  Transmission Date: 20240409
  Serious: Yes (Other)
  Sender: FDA-Public Use
  Company Number: BE-ABBVIE-5548619

PATIENT
  Sex: Male
  Weight: 77 kg

DRUGS (8)
  1. ADALIMUMAB [Suspect]
     Active Substance: ADALIMUMAB\ISOPROPYL ALCOHOL
     Indication: Crohn^s disease
     Dosage: UNK
     Route: 058
     Dates: start: 201608
  2. ADALIMUMAB [Suspect]
     Active Substance: ADALIMUMAB\ISOPROPYL ALCOHOL
     Dosage: UNK
     Route: 058
     Dates: start: 201807
  3. RISANKIZUMAB [Suspect]
     Active Substance: RISANKIZUMAB
     Indication: Crohn^s disease
     Dosage: 1200 MILLIGRAM
     Route: 058
     Dates: start: 202005
  4. RISANKIZUMAB [Suspect]
     Active Substance: RISANKIZUMAB
     Dosage: UNK, Q8WK
     Route: 058
  5. RISANKIZUMAB [Suspect]
     Active Substance: RISANKIZUMAB
     Dosage: 360 MILLIGRAM, Q8WK
     Route: 058
     Dates: start: 202005
  6. RISANKIZUMAB [Suspect]
     Active Substance: RISANKIZUMAB
     Dosage: 600 MILLIGRAM
     Route: 058
     Dates: start: 201911
  7. BUDESONIDE [Concomitant]
     Active Substance: BUDESONIDE
     Indication: Steroid therapy
     Dosage: UNK
  8. CHOLESTYRAMINE [Concomitant]
     Active Substance: CHOLESTYRAMINE
     Indication: Product used for unknown indication
     Dosage: 6 GRAM, QD
     Route: 065

REACTIONS (3)
  - Crohn^s disease [Unknown]
  - Therapeutic product effect incomplete [Unknown]
  - Off label use [Unknown]

NARRATIVE: CASE EVENT DATE: 20200501
